FAERS Safety Report 8567273-5 (Version None)
Quarter: 2012Q3

REPORT INFORMATION
  Report Type: 
  Country: None (occurrence: None)
  Receive Date: 20120803
  Receipt Date: 20120720
  Transmission Date: 20120928
  Serious: Yes (Death, Hospitalization)
  Sender: FDA-Public Use
  Company Number: CHPA2012US015509

PATIENT
  Age: 76 Year
  Sex: Female

DRUGS (3)
  1. PENICILLIN [Suspect]
     Indication: LUNG INFECTION
     Dosage: UNK, UNK
     Dates: start: 19790418, end: 19790418
  2. MYLANTA                                 /USA/ [Concomitant]
     Indication: GASTRIC ULCER HAEMORRHAGE
     Dosage: UNK, UNK
  3. MAALOX ANTACID/ANTIGAS RS LIQ COOL MINT [Suspect]
     Indication: GASTRIC ULCER HAEMORRHAGE
     Dosage: UNK, UNK

REACTIONS (5)
  - LUNG INFECTION [None]
  - THERAPEUTIC RESPONSE UNEXPECTED [None]
  - OFF LABEL USE [None]
  - ANAPHYLACTIC SHOCK [None]
  - DRUG HYPERSENSITIVITY [None]
